FAERS Safety Report 12517144 (Version 3)
Quarter: 2017Q1

REPORT INFORMATION
  Report Type: Report from Study
  Country: US (occurrence: US)
  Receive Date: 20160630
  Receipt Date: 20170103
  Transmission Date: 20170428
  Serious: Yes (Death, Hospitalization, Other)
  Sender: FDA-Public Use
  Company Number: US-EXELIXIS-CABO-16006574

PATIENT
  Age: 66 Year
  Sex: Female
  Weight: 68 kg

DRUGS (15)
  1. CABOMETYX [Suspect]
     Active Substance: CABOZANTINIB S-MALATE
     Indication: RENAL CANCER
     Dosage: 40 MG, QD
     Route: 048
     Dates: start: 20160601, end: 20160609
  2. CALCIUM ACETATE. [Concomitant]
     Active Substance: CALCIUM ACETATE
  3. PANTOPRAZOLE [Concomitant]
     Active Substance: PANTOPRAZOLE SODIUM
  4. LEVOTHYROXINE. [Concomitant]
     Active Substance: LEVOTHYROXINE
  5. ONDANSETRON HYDROCHLORIDE. [Concomitant]
     Active Substance: ONDANSETRON HYDROCHLORIDE
  6. ASPIRIN. [Concomitant]
     Active Substance: ASPIRIN
  7. CABOMETYX [Suspect]
     Active Substance: CABOZANTINIB S-MALATE
     Dosage: 20 MG, QD
     Route: 048
     Dates: start: 20160712, end: 201609
  8. AMLODIPINE [Concomitant]
     Active Substance: AMLODIPINE BESYLATE
  9. LORAZEPAM. [Concomitant]
     Active Substance: LORAZEPAM
  10. COMBIGAN [Concomitant]
     Active Substance: BRIMONIDINE TARTRATE\TIMOLOL MALEATE
  11. PREDNISONE. [Concomitant]
     Active Substance: PREDNISONE
  12. FLONASE [Concomitant]
     Active Substance: FLUTICASONE PROPIONATE
  13. NEOMYCIN SULFATE. [Concomitant]
     Active Substance: NEOMYCIN SULFATE
  14. MULTIVITAMIN [Concomitant]
     Active Substance: VITAMINS
  15. CRESTOR [Concomitant]
     Active Substance: ROSUVASTATIN CALCIUM

REACTIONS (29)
  - Death [Fatal]
  - Liver injury [Unknown]
  - Night sweats [Not Recovered/Not Resolved]
  - Ecchymosis [Not Recovered/Not Resolved]
  - Anaemia [Unknown]
  - Dizziness [Unknown]
  - Metastases to lymph nodes [Not Recovered/Not Resolved]
  - Pruritus [Not Recovered/Not Resolved]
  - Oedema peripheral [Not Recovered/Not Resolved]
  - Decreased appetite [Unknown]
  - Dry mouth [Unknown]
  - Dyspnoea [Recovering/Resolving]
  - Fatigue [Not Recovered/Not Resolved]
  - Diarrhoea [Not Recovered/Not Resolved]
  - Vena cava embolism [Unknown]
  - Vomiting [Not Recovered/Not Resolved]
  - Drug ineffective [Unknown]
  - Dehydration [Unknown]
  - Asthenia [Unknown]
  - Weight decreased [Unknown]
  - Nausea [Recovering/Resolving]
  - Cardiac failure congestive [Unknown]
  - Neck pain [Unknown]
  - Musculoskeletal discomfort [Unknown]
  - Visual impairment [Unknown]
  - Myalgia [Not Recovered/Not Resolved]
  - Cough [Unknown]
  - Eructation [Unknown]
  - Anxiety [Unknown]

NARRATIVE: CASE EVENT DATE: 201606
